FAERS Safety Report 10397236 (Version 1)
Quarter: 2014Q3

REPORT INFORMATION
  Report Type: Spontaneous
  Country: JP (occurrence: JP)
  Receive Date: 20140820
  Receipt Date: 20140820
  Transmission Date: 20150326
  Serious: Yes (Death, Other)
  Sender: FDA-Public Use
  Company Number: PHHY2013JP161074

PATIENT
  Age: 86 Year
  Sex: Female

DRUGS (1)
  1. AFINITOR [Suspect]
     Active Substance: EVEROLIMUS
     Indication: RENAL CELL CARCINOMA
     Dosage: UNK UKN, UNK

REACTIONS (4)
  - Death [Fatal]
  - Malignant neoplasm progression [Unknown]
  - White blood cell count decreased [Unknown]
  - Platelet count decreased [Unknown]
